FAERS Safety Report 7483012-3 (Version None)
Quarter: 2011Q2

REPORT INFORMATION
  Report Type: 
  Country: None (occurrence: None)
  Receive Date: 20110516
  Receipt Date: 20110513
  Transmission Date: 20111010
  Serious: Yes (Life-Threatening, Other)
  Sender: FDA-Public Use
  Company Number: NL-BAYER-2011-040922

PATIENT
  Age: 70 Year
  Sex: Female

DRUGS (11)
  1. SOTALOL HCL [Suspect]
     Indication: ARRHYTHMIA
     Dosage: 80 MG, BID
  2. MORPHINE [Concomitant]
     Dosage: 7.5 MG, PRN UP TO 6 TIMES PER DAY
     Route: 058
  3. ONDANSETRON [Concomitant]
     Dosage: 4 MG, PRN UP TO THREE TIMES PER DAY
     Route: 042
  4. FUROSEMIDE [Concomitant]
     Dosage: 40 MG, QD
     Route: 042
  5. ENOXAPARIN [Concomitant]
     Dosage: 4000 IU, QD
     Route: 058
  6. FOSINOPRIL SODIUM [Concomitant]
     Dosage: 20 MG, QD
  7. ACETAMINOPHEN [Concomitant]
     Dosage: 1000 MG, QID
  8. ACETYLSALICYLIC ACID SRT [Concomitant]
     Dosage: 80 MG, QD
  9. PANTOPRAZOLE [Concomitant]
     Dosage: 40 MG, BID
  10. SIMVASTATIN [Concomitant]
     Dosage: 40 MG, QD
  11. NOVORAPID [Concomitant]
     Dosage: AS PER SLIDING SCALE REGIMEN

REACTIONS (3)
  - VENTRICULAR FIBRILLATION [None]
  - CARDIAC ARREST [None]
  - ELECTROCARDIOGRAM QT PROLONGED [None]
